FAERS Safety Report 25275739 (Version 1)
Quarter: 2025Q2

REPORT INFORMATION
  Report Type: Spontaneous
  Country: US (occurrence: US)
  Receive Date: 20250507
  Receipt Date: 20250507
  Transmission Date: 20250716
  Serious: Yes (Death, Hospitalization, Other)
  Sender: AMGEN
  Company Number: US-AMGEN-USASP2025086168

PATIENT
  Age: 46 Year
  Sex: Female

DRUGS (1)
  1. RITUXIMAB [Suspect]
     Active Substance: RITUXIMAB
     Indication: Lupus nephritis
     Route: 065

REACTIONS (4)
  - Death [Fatal]
  - COVID-19 pneumonia [Recovered/Resolved]
  - Acute respiratory distress syndrome [Unknown]
  - Off label use [Unknown]
